FAERS Safety Report 12310357 (Version 1)
Quarter: 2016Q2

REPORT INFORMATION
  Report Type: Spontaneous
  Country: US (occurrence: None)
  Receive Date: 20160426
  Receipt Date: 20160426
  Transmission Date: 20160815
  Serious: No
  Sender: FDA-Public Use
  Company Number: None

PATIENT
  Age: 52 Year
  Sex: Male
  Weight: 81.65 kg

DRUGS (8)
  1. HEARING AID [Concomitant]
  2. MULTI VITAMIN [Concomitant]
     Active Substance: VITAMINS
  3. PROTEIN DRINK [Concomitant]
  4. CRESTOR [Suspect]
     Active Substance: ROSUVASTATIN CALCIUM
     Indication: BLOOD CHOLESTEROL INCREASED
     Route: 048
  5. OMEGA 3 [Concomitant]
     Active Substance: OMEGA-3 FATTY ACIDS
  6. ACETAZOLAMIDE. [Concomitant]
     Active Substance: ACETAZOLAMIDE
  7. LEVOTHYROXINE. [Concomitant]
     Active Substance: LEVOTHYROXINE
  8. AMINO ACIDS [Concomitant]
     Active Substance: AMINO ACIDS

REACTIONS (3)
  - Amnesia [None]
  - Confusional state [None]
  - Sluggishness [None]

NARRATIVE: CASE EVENT DATE: 20150101
